FAERS Safety Report 6838920-0 (Version None)
Quarter: 2010Q3

REPORT INFORMATION
  Report Type: 
  Country: None (occurrence: None)
  Receive Date: 20100713
  Receipt Date: 20070810
  Transmission Date: 20110219
  Serious: No
  Sender: FDA-Public Use
  Company Number: US-PFIZER INC-2007047534

PATIENT
  Sex: Male
  Weight: 93.2 kg

DRUGS (9)
  1. CHANTIX [Suspect]
     Indication: SMOKING CESSATION THERAPY
     Dates: start: 20070529
  2. LIPITOR [Concomitant]
  3. LIBRIUM [Concomitant]
  4. ALL OTHER THERAPEUTIC PRODUCTS [Concomitant]
  5. DILANTIN [Concomitant]
  6. CELEBREX [Concomitant]
  7. ACETYLSALICYLIC ACID [Concomitant]
  8. FELODIPINE [Concomitant]
  9. VITAMINS [Concomitant]

REACTIONS (1)
  - RENAL DISORDER [None]
